FAERS Safety Report 9121093 (Version 2)
Quarter: 2013Q2

REPORT INFORMATION
  Report Type: Spontaneous
  Country: US (occurrence: US)
  Receive Date: 20130226
  Receipt Date: 20130405
  Transmission Date: 20140414
  Serious: Yes (Hospitalization)
  Sender: FDA-Public Use
  Company Number: US-PFIZER INC-2013069371

PATIENT
  Sex: Male

DRUGS (2)
  1. LYRICA [Suspect]
     Dosage: UNK
  2. NORVASC [Suspect]
     Dosage: UNK

REACTIONS (2)
  - Cardiac failure congestive [Unknown]
  - Visual impairment [Unknown]
